FAERS Safety Report 6625674-6 (Version None)
Quarter: 2010Q1

REPORT INFORMATION
  Report Type: 
  Country: None (occurrence: None)
  Receive Date: 20100310
  Receipt Date: 20100304
  Transmission Date: 20100710
  Serious: Yes (Disabling)
  Sender: FDA-Public Use
  Company Number: GB-ELI_LILLY_AND_COMPANY-GB200909006963

PATIENT
  Sex: Male
  Weight: 95 kg

DRUGS (3)
  1. ALIMTA [Suspect]
     Indication: NON-SMALL CELL LUNG CANCER
     Dosage: UNKNOWN
     Route: 042
     Dates: start: 20090731, end: 20090731
  2. VITAMIN B-12 [Concomitant]
     Dosage: UNKNOWN
  3. FOLIC ACID [Concomitant]
     Dosage: UNKNOWN

REACTIONS (7)
  - DECREASED APPETITE [None]
  - FATIGUE [None]
  - HYPOPHAGIA [None]
  - PAIN IN EXTREMITY [None]
  - PERFORMANCE STATUS DECREASED [None]
  - PRURITUS [None]
  - WEIGHT DECREASED [None]
